FAERS Safety Report 14342331 (Version 3)
Quarter: 2018Q1

REPORT INFORMATION
  Report Type: Spontaneous
  Country: US (occurrence: US)
  Receive Date: 20180102
  Receipt Date: 20180219
  Transmission Date: 20180509
  Serious: Yes (Other)
  Sender: FDA-Public Use
  Company Number: US-GLAXOSMITHKLINE-US2017GSK199028

PATIENT
  Sex: Female
  Weight: 86.17 kg

DRUGS (3)
  1. LAMICTAL [Suspect]
     Active Substance: LAMOTRIGINE
     Indication: SEIZURE
     Dosage: 75 MG, BID
     Route: 048
  2. SUMATRIPTAN (SUMATRIPTAN SUCCINATE) SOLUTION FOR INJECTION IN PRE-FILL [Suspect]
     Active Substance: SUMATRIPTAN
     Indication: MIGRAINE
     Dosage: UNK
  3. DEPAKOTE [Suspect]
     Active Substance: DIVALPROEX SODIUM
     Indication: SEIZURE
     Dosage: 250 MG QAM, 500 MG QPM
     Route: 048

REACTIONS (9)
  - Seizure [Unknown]
  - Extra dose administered [Unknown]
  - Product quality issue [Unknown]
  - Tremor [Unknown]
  - Ill-defined disorder [Unknown]
  - Dysgraphia [Unknown]
  - Drug dose omission [Unknown]
  - Drug ineffective [Unknown]
  - Intentional product misuse [Unknown]
